FAERS Safety Report 7915728-6 (Version None)
Quarter: 2011Q4

REPORT INFORMATION
  Report Type: 
  Country: None (occurrence: None)
  Receive Date: 20111115
  Receipt Date: 20111104
  Transmission Date: 20120403
  Serious: Yes (Congenital Anomaly)
  Sender: FDA-Public Use
  Company Number: CN-GLAXOSMITHKLINE-B0762352B

PATIENT

DRUGS (1)
  1. LAMIVUDINE [Suspect]
     Indication: HEPATITIS B
     Dosage: 100MG PER DAY
     Route: 064
     Dates: start: 20100315, end: 20101027

REACTIONS (3)
  - RASH [None]
  - FOETAL EXPOSURE DURING PREGNANCY [None]
  - IMMUNODEFICIENCY CONGENITAL [None]
